FAERS Safety Report 5874222-7 (Version None)
Quarter: 2008Q3

REPORT INFORMATION
  Report Type: 
  Country: None (occurrence: None)
  Receive Date: 20080908
  Receipt Date: 20080828
  Transmission Date: 20090109
  Serious: Yes (Other)
  Sender: FDA-Public Use
  Company Number: US-JNJFOC-20080900203

PATIENT
  Sex: Male

DRUGS (3)
  1. IMODIUM [Suspect]
     Route: 048
  2. IMODIUM [Suspect]
     Indication: DIARRHOEA
     Route: 048
  3. ANTIBIOTIC [Concomitant]
     Indication: PNEUMONIA

REACTIONS (2)
  - ANURIA [None]
  - INCORRECT DRUG ADMINISTRATION DURATION [None]
